FAERS Safety Report 4919675-3 (Version None)
Quarter: 2006Q1

REPORT INFORMATION
  Report Type: 
  Country: None (occurrence: None)
  Receive Date: 20060113
  Receipt Date: 20051118
  Transmission Date: 20060701
  Serious: No
  Sender: FDA-Public Use
  Company Number: 2005SP004063

PATIENT
  Age: 47 Year
  Sex: Male

DRUGS (4)
  1. LUNESTA [Suspect]
     Dosage: 3 MG;HS
     Dates: start: 20051117, end: 20051121
  2. AMBIEN [Concomitant]
  3. LITHIUM [Concomitant]
  4. KLONOPIN [Concomitant]

REACTIONS (3)
  - ANXIETY [None]
  - DRUG WITHDRAWAL SYNDROME [None]
  - DYSGEUSIA [None]
